FAERS Safety Report 9953685 (Version 1)
Quarter: 2014Q1

REPORT INFORMATION
  Report Type: Report from Study
  Country: US (occurrence: US)
  Receive Date: 20140304
  Receipt Date: 20140304
  Transmission Date: 20141002
  Serious: No
  Sender: FDA-Public Use
  Company Number: US-ABBVIE-13P-163-1080470-00

PATIENT
  Age: 33 Year
  Sex: Female

DRUGS (19)
  1. HUMIRA [Suspect]
     Indication: CROHN^S DISEASE
     Dosage: DAY 1
     Dates: start: 20130222, end: 20130222
  2. HUMIRA [Suspect]
     Dosage: DAY 15
  3. HUMIRA [Suspect]
  4. IRON [Concomitant]
     Indication: BLOOD IRON DECREASED
     Dosage: DAILY
  5. SINGULAIR [Concomitant]
     Indication: HYPERSENSITIVITY
     Dosage: 10 MG DAILY
  6. NEXIUM [Concomitant]
     Indication: DYSPEPSIA
     Dosage: 20 MG DAILY
  7. ADVAIR [Concomitant]
     Indication: ASTHMA
     Dosage: 2 PUFFS DAILY
  8. AVIANE [Concomitant]
     Indication: CONTRACEPTION
     Dosage: DAILY
  9. AZATHIOPRINE [Concomitant]
     Indication: CROHN^S DISEASE
     Dosage: 50 MG DAILY
  10. PENTASA [Concomitant]
     Indication: CROHN^S DISEASE
  11. GLYCOPYRROLATE [Concomitant]
     Indication: CROHN^S DISEASE
  12. VITAMIN B 12 [Concomitant]
     Indication: CROHN^S DISEASE
     Route: 050
  13. SYNTHROID [Concomitant]
     Indication: AUTOIMMUNE THYROIDITIS
     Dosage: 75 MG DAILY
  14. TRAMADOL [Concomitant]
     Indication: BACK PAIN
  15. TRAMADOL [Concomitant]
     Indication: MUSCLE SPASMS
  16. FLEXERIL [Concomitant]
     Indication: BACK PAIN
  17. FLEXERIL [Concomitant]
     Indication: MUSCLE SPASMS
  18. CALCIUM MAGNESIUM ZINC [Concomitant]
     Indication: PRODUCT USED FOR UNKNOWN INDICATION
  19. CALCIUM MAGNESIUM ZINC [Concomitant]
     Indication: MUSCLE SPASMS

REACTIONS (3)
  - Fatigue [Not Recovered/Not Resolved]
  - Alopecia [Unknown]
  - Depression [Unknown]
